FAERS Safety Report 11346582 (Version 1)
Quarter: 2015Q3

REPORT INFORMATION
  Report Type: Spontaneous
  Country: US (occurrence: US)
  Receive Date: 20150803
  Receipt Date: 20150803
  Transmission Date: 20151125
  Serious: No
  Sender: FDA-Public Use
  Company Number: US-ELI_LILLY_AND_COMPANY-US201007001785

PATIENT
  Age: 39 Year
  Sex: Male

DRUGS (2)
  1. STRATTERA [Suspect]
     Active Substance: ATOMOXETINE HYDROCHLORIDE
     Indication: ATTENTION DEFICIT/HYPERACTIVITY DISORDER
     Dosage: 25 MG, DAILY (1/D)
     Route: 065
     Dates: start: 20100701
  2. ANDROGEL [Concomitant]
     Active Substance: TESTOSTERONE

REACTIONS (6)
  - Ejaculation disorder [Unknown]
  - Penis disorder [Unknown]
  - Testicular disorder [Unknown]
  - Erectile dysfunction [Unknown]
  - Blood testosterone decreased [Not Recovered/Not Resolved]
  - Sexual dysfunction [Unknown]
